FAERS Safety Report 17599207 (Version 1)
Quarter: 2020Q1

REPORT INFORMATION
  Report Type: Spontaneous
  Country: US (occurrence: US)
  Receive Date: 20200330
  Receipt Date: 20200330
  Transmission Date: 20200409
  Serious: No
  Sender: FDA-Public Use
  Company Number: None

PATIENT
  Age: 71 Year
  Sex: Female
  Weight: 75.47 kg

DRUGS (9)
  1. METOPROLOL TARTRATE 100 MG ORAL [Concomitant]
  2. CAPECITABINE. [Suspect]
     Active Substance: CAPECITABINE
     Indication: CHOLANGIOCARCINOMA
     Route: 048
     Dates: start: 20200226, end: 20200330
  3. CALCIUM CARBONATE - VITAMIN D 600 - 400 MG ORAL [Concomitant]
  4. LEVOTHYROXINE 150 MCG ORAL [Concomitant]
  5. PLAQUENIL 200 MG ORAL [Concomitant]
  6. PROVENTIL 108 MCG INHALER [Concomitant]
  7. PROCHLORPERAZINE MALEATE 10 MG, ORAL [Concomitant]
  8. FUROSEMIDE 20 MG ORAL [Concomitant]
  9. PAROXETINE 40 MG,ORAL [Concomitant]

REACTIONS (1)
  - Death [None]

NARRATIVE: CASE EVENT DATE: 20200330
